FAERS Safety Report 10497980 (Version 2)
Quarter: 2014Q4

REPORT INFORMATION
  Report Type: Spontaneous
  Country: US (occurrence: US)
  Receive Date: 20141006
  Receipt Date: 20141010
  Transmission Date: 20150528
  Serious: Yes (Other)
  Sender: FDA-Public Use
  Company Number: CHPA2014US013179

PATIENT
  Age: 66 Year
  Sex: Female

DRUGS (3)
  1. 4 WAY SALINE MOISTURIZING MIST [Suspect]
     Active Substance: SODIUM CHLORIDE
     Indication: NASAL CONGESTION
     Dosage: UNK, MORE THEN ONCE A DAY
     Route: 045
  2. 4 WAY SALINE MOISTURIZING MIST [Suspect]
     Active Substance: SODIUM CHLORIDE
     Indication: PROPHYLAXIS
  3. NASONEX [Concomitant]
     Active Substance: MOMETASONE FUROATE
     Indication: NASAL DRYNESS
     Route: 065

REACTIONS (2)
  - Hypertension [Not Recovered/Not Resolved]
  - Incorrect drug administration duration [Unknown]

NARRATIVE: CASE EVENT DATE: 1997
